FAERS Safety Report 5503048-9 (Version None)
Quarter: 2007Q4

REPORT INFORMATION
  Report Type: 
  Country: None (occurrence: None)
  Receive Date: 20071031
  Receipt Date: 20071022
  Transmission Date: 20080405
  Serious: Yes (Death)
  Sender: FDA-Public Use
  Company Number: JP-ROCHE-512973

PATIENT
  Age: 65 Year
  Sex: Male
  Weight: 65 kg

DRUGS (6)
  1. VESANOID [Suspect]
     Indication: ACUTE PROMYELOCYTIC LEUKAEMIA
     Route: 048
     Dates: start: 20070709, end: 20070710
  2. GRAN [Suspect]
     Indication: DRUG USE FOR UNKNOWN INDICATION
     Dosage: ROUTE: INJECTABLE (NOT OTHERWISE SPECIFIED). GENERIC NAME: FILGRASTIM (GENETICAL RECOMBINATION).
     Route: 050
     Dates: start: 20070706, end: 20070710
  3. CYLOCIDE [Concomitant]
     Dosage: ROUTE: INJECTABLE (NOT OTHERWISE SPECIFIED)
     Route: 050
     Dates: start: 20070628, end: 20070704
  4. IDAMYCIN [Concomitant]
     Dosage: ROUTE: INTRAVENOUS (NOT OTHERWISE SPECIFIED).
     Route: 042
     Dates: start: 20070625, end: 20070630
  5. DIFLUCAN [Concomitant]
     Route: 048
     Dates: start: 20070628, end: 20070709
  6. RADICUT [Concomitant]
     Route: 041

REACTIONS (1)
  - PULMONARY ALVEOLAR HAEMORRHAGE [None]
